FAERS Safety Report 6896521-2 (Version None)
Quarter: 2010Q3

REPORT INFORMATION
  Report Type: 
  Country: None (occurrence: None)
  Receive Date: 20100802
  Receipt Date: 20090310
  Transmission Date: 20110219
  Serious: Yes (Hospitalization)
  Sender: FDA-Public Use
  Company Number: US-PFIZER INC-2009186700

PATIENT
  Sex: Female

DRUGS (10)
  1. GABAPENTIN [Suspect]
     Indication: CONVULSION
     Dosage: 600 MG, 1X/DAY AT THE HOUR OF SLEEP
     Route: 048
  2. BENICAR HCT [Suspect]
     Indication: HYPERTENSION
     Dosage: 20/12.5 MG ONCE DAILY
     Route: 048
  3. IMODIUM A-D [Concomitant]
     Indication: DIARRHOEA
     Dosage: 12-20 TABLETS DAILY (24-40MG/DAY), 3 TABLETS (6MG) AFTER EACH BOWEL MOVEMENT
     Route: 048
     Dates: start: 20020101, end: 20090101
  4. FLEXERIL [Concomitant]
     Indication: PAIN
     Dosage: 20 MG, 1X/DAY
     Route: 048
  5. DARVOCET [Concomitant]
     Indication: PAIN
     Dosage: AT BEDTIME
     Dates: start: 20070101
  6. EXTRA STRENGTH TYLENOL [Concomitant]
     Indication: PAIN
     Dosage: 500 MG, 1X/DAY AT BEDTIME
     Route: 048
     Dates: start: 20070101
  7. DILANTIN [Concomitant]
     Indication: CONVULSION
     Dosage: 100 MG, 1X/DAY
     Route: 048
  8. DONNAGEL [Concomitant]
     Dosage: UNK
  9. ACIPHEX [Concomitant]
     Indication: GASTROOESOPHAGEAL REFLUX DISEASE
     Dosage: 20 MG, 1X/DAY
     Route: 048
  10. BENADRYL [Concomitant]
     Indication: SINUS DISORDER
     Dosage: 50 MG, 1X/DAY
     Route: 048

REACTIONS (1)
  - PANCREATITIS CHRONIC [None]
